FAERS Safety Report 4710504-X (Version None)
Quarter: 2005Q3

REPORT INFORMATION
  Report Type: 
  Country: None (occurrence: None)
  Receive Date: 20050711
  Receipt Date: 20050704
  Transmission Date: 20060218
  Serious: Yes (Life-Threatening, Hospitalization)
  Sender: FDA-Public Use
  Company Number: GB-ROCHE-409552

PATIENT
  Age: 48 Year
  Sex: Female
  Weight: 121 kg

DRUGS (2)
  1. ORLISTAT [Suspect]
     Indication: OBESITY
     Route: 048
     Dates: start: 20050518
  2. CO-TENIDONE [Concomitant]
     Indication: BLOOD PRESSURE INCREASED
     Dosage: DAILY DOSE WAS REPORTED AS 50/12.5MG
     Route: 048
     Dates: start: 19991123

REACTIONS (3)
  - ABDOMINAL PAIN [None]
  - DIVERTICULITIS [None]
  - PERITONITIS [None]
